FAERS Safety Report 6031140-1 (Version None)
Quarter: 2008Q4

REPORT INFORMATION
  Report Type: 
  Country: None (occurrence: None)
  Receive Date: 20081222
  Receipt Date: 20081015
  Transmission Date: 20090506
  Serious: No
  Sender: FDA-Public Use
  Company Number: US-WYE-H06423108

PATIENT
  Age: 72 Year
  Sex: Female
  Weight: 44.95 kg

DRUGS (3)
  1. PRISTIQ [Suspect]
     Dosage: 50 MG ONE DAY, THEN 100 MG THE NEXT DAY, ORAL
     Route: 048
     Dates: start: 20080801
  2. LIPITOR [Concomitant]
  3. SYNTHROID [Concomitant]

REACTIONS (1)
  - VISION BLURRED [None]
